FAERS Safety Report 6563991-9 (Version None)
Quarter: 2010Q1

REPORT INFORMATION
  Report Type: 
  Country: None (occurrence: None)
  Receive Date: 20100131
  Receipt Date: 20100121
  Transmission Date: 20100710
  Serious: Yes (Hospitalization)
  Sender: FDA-Public Use
  Company Number: US-JNJFOC-20100103066

PATIENT
  Sex: Female
  Weight: 51.1 kg

DRUGS (3)
  1. INFLIXIMAB [Suspect]
     Indication: INFLAMMATORY BOWEL DISEASE
     Route: 042
  2. IMITREX [Concomitant]
  3. LOESTRIN FE 1/20 [Concomitant]

REACTIONS (1)
  - COLITIS [None]
